FAERS Safety Report 5573379-5 (Version None)
Quarter: 2007Q4

REPORT INFORMATION
  Report Type: 
  Country: None (occurrence: None)
  Receive Date: 20071220
  Receipt Date: 20071220
  Transmission Date: 20080405
  Serious: Yes (Hospitalization)
  Sender: FDA-Public Use
  Company Number: None

PATIENT
  Sex: Female
  Weight: 70.7611 kg

DRUGS (1)
  1. HYDROXYCHLOROQUINE SULFATE [Suspect]
     Indication: POLYMYALGIA RHEUMATICA
     Dosage: 200MG BID PO
     Route: 048
     Dates: start: 20071101, end: 20071122

REACTIONS (3)
  - MULTI-ORGAN DISORDER [None]
  - NO THERAPEUTIC RESPONSE [None]
  - RASH [None]
